FAERS Safety Report 9153747 (Version 1)
Quarter: 2013Q1

REPORT INFORMATION
  Report Type: Spontaneous
  Country: JP (occurrence: JP)
  Receive Date: 20130214
  Receipt Date: 20130214
  Transmission Date: 20140127
  Serious: Yes (Other)
  Sender: FDA-Public Use
  Company Number: JP-BRACCO-006797

PATIENT
  Sex: Male

DRUGS (2)
  1. IOPAMIDOL [Suspect]
     Indication: ANGIOGRAM
     Route: 013
  2. IOPAMIDOL [Suspect]
     Indication: ANGIOGRAM
     Route: 013

REACTIONS (4)
  - Convulsion [Recovered/Resolved]
  - Altered state of consciousness [Recovered/Resolved]
  - Hemiparesis [Recovered/Resolved]
  - Aphasia [Recovered/Resolved]
